FAERS Safety Report 4972163-0 (Version None)
Quarter: 2006Q2

REPORT INFORMATION
  Report Type: 
  Country: None (occurrence: None)
  Receive Date: 20060413
  Receipt Date: 20060317
  Transmission Date: 20061013
  Serious: Yes (Death, Other)
  Sender: FDA-Public Use
  Company Number: PHFR2006GB01221

PATIENT
  Age: 56 Year
  Sex: Female
  Weight: 48 kg

DRUGS (4)
  1. ZOMETA [Suspect]
     Indication: BREAST CANCER METASTATIC
     Dosage: 4 MG, QMO
     Route: 042
     Dates: start: 20050615, end: 20060328
  2. ANASTROZOLE [Concomitant]
     Indication: BREAST CANCER METASTATIC
     Dosage: 1 MG/DAY
     Route: 048
     Dates: start: 20060208
  3. ANALGESICS [Concomitant]
     Route: 065
  4. PAMIDRONATE DISODIUM [Suspect]
     Indication: HYPERCALCAEMIA OF MALIGNANCY
     Route: 065

REACTIONS (3)
  - DRUG RESISTANCE [None]
  - HYPERCALCAEMIA [None]
  - NO THERAPEUTIC RESPONSE [None]
